FAERS Safety Report 8924455 (Version 2)
Quarter: 2012Q4

REPORT INFORMATION
  Report Type: 
  Country: US (occurrence: US)
  Receive Date: 20121126
  Receipt Date: 20121128
  Transmission Date: 20130627
  Serious: Yes (Death, Other)
  Sender: FDA-Public Use
  Company Number: PHHY2012US107983

PATIENT
  Age: 56 Year
  Sex: Female

DRUGS (7)
  1. METAXALONE [Suspect]
  2. VERAPAMIL [Suspect]
  3. PARACETAMOL [Suspect]
  4. KEPPRA [Suspect]
  5. BUTALBITAL [Suspect]
  6. DULOXETINE [Suspect]
  7. VERAPAMIL [Suspect]

REACTIONS (2)
  - Toxicity to various agents [Fatal]
  - Completed suicide [Unknown]
